FAERS Safety Report 7810737-X (Version None)
Quarter: 2011Q4

REPORT INFORMATION
  Report Type: 
  Country: None (occurrence: None)
  Receive Date: 20111006
  Receipt Date: 20110928
  Transmission Date: 20120403
  Serious: Yes (Hospitalization)
  Sender: FDA-Public Use
  Company Number: 2011SP003273

PATIENT
  Sex: Male

DRUGS (2)
  1. LATUDA [Suspect]
     Dosage: (80 MG) 80 MG; ;ORAL
     Route: 048
     Dates: start: 20110101
  2. ZYPREXA [Concomitant]

REACTIONS (2)
  - WEIGHT DECREASED [None]
  - MAJOR DEPRESSION [None]
